FAERS Safety Report 10642963 (Version 1)
Quarter: 2014Q4

REPORT INFORMATION
  Report Type: Spontaneous
  Country: US (occurrence: US)
  Receive Date: 20141210
  Receipt Date: 20141210
  Transmission Date: 20150529
  Serious: No
  Sender: FDA-Public Use
  Company Number: US-009507513-1412USA002381

PATIENT
  Sex: Male

DRUGS (1)
  1. CLARITIN [Suspect]
     Active Substance: LORATADINE
     Indication: RASH
     Dosage: 10 MG, BID
     Route: 048
     Dates: start: 20141130

REACTIONS (3)
  - Pruritus [Unknown]
  - Off label use [Unknown]
  - Intentional overdose [Unknown]

NARRATIVE: CASE EVENT DATE: 20141130
